FAERS Safety Report 4467072-X (Version None)
Quarter: 2004Q4

REPORT INFORMATION
  Report Type: 
  Country: None (occurrence: None)
  Receive Date: 20041004
  Receipt Date: 20041004
  Transmission Date: 20050328
  Serious: Yes (Other)
  Sender: FDA-Public Use
  Company Number: None

PATIENT
  Age: 63 Year
  Sex: Male
  Weight: 88.64 kg

DRUGS (10)
  1. QUININE SULFATE 325 MG [Suspect]
     Indication: MUSCLE CRAMP
     Dosage: QD ORAL
     Route: 048
  2. QUINIDINE ORDERD ON ACCIDENT [Suspect]
     Indication: MEDICATION ERROR
     Dosage: QD ORAL
     Route: 048
  3. OMEPRAZOLE [Concomitant]
  4. LOSARTAN POTASSIUM [Concomitant]
  5. SIMVASTATIN [Concomitant]
  6. METOPROLOL [Concomitant]
  7. ASPIRIN [Concomitant]
  8. TERAZOSIN HCL [Concomitant]
  9. NPH INSULIN [Concomitant]
  10. M.V.I. [Concomitant]

REACTIONS (1)
  - MEDICATION ERROR [None]
